FAERS Safety Report 8073902-5 (Version None)
Quarter: 2012Q1

REPORT INFORMATION
  Report Type: 
  Country: None (occurrence: None)
  Receive Date: 20120126
  Receipt Date: 20120123
  Transmission Date: 20120608
  Serious: Yes (Other)
  Sender: FDA-Public Use
  Company Number: US-BAYER-2012-007548

PATIENT
  Sex: Male

DRUGS (2)
  1. PLAVIX [Suspect]
     Indication: STENT PLACEMENT
     Dosage: DAILY DOSE 75 MG
     Route: 048
     Dates: start: 20100101
  2. ASPIRIN [Suspect]
     Dosage: 81 MG, UNK

REACTIONS (2)
  - BLOOD URINE PRESENT [None]
  - HAEMORRHAGE URINARY TRACT [None]
